FAERS Safety Report 6733550-3 (Version None)
Quarter: 2010Q2

REPORT INFORMATION
  Report Type: 
  Country: None (occurrence: None)
  Receive Date: 20100520
  Receipt Date: 20100511
  Transmission Date: 20101027
  Serious: Yes (Hospitalization, Other)
  Sender: FDA-Public Use
  Company Number: US-SANOFI-AVENTIS-2010SA028119

PATIENT
  Age: 60 Year
  Sex: Female

DRUGS (2)
  1. AMBIEN CR [Suspect]
     Indication: SLEEP DISORDER
     Route: 048
     Dates: start: 20080101, end: 20100201
  2. AMBIEN CR [Suspect]
     Route: 048
     Dates: start: 20100201, end: 20100401

REACTIONS (6)
  - AMNESIA [None]
  - FALL [None]
  - PNEUMONIA [None]
  - SCREAMING [None]
  - SLEEP-RELATED EATING DISORDER [None]
  - STRESS FRACTURE [None]
